FAERS Safety Report 4658388-2 (Version None)
Quarter: 2005Q2

REPORT INFORMATION
  Report Type: 
  Country: None (occurrence: None)
  Receive Date: 20050509
  Receipt Date: 20050425
  Transmission Date: 20051028
  Serious: Yes (Hospitalization)
  Sender: FDA-Public Use
  Company Number: A-US2005-09525

PATIENT
  Age: 8 Year
  Sex: Female
  Weight: 24.7 kg

DRUGS (4)
  1. TRACLEER [Suspect]
     Indication: PULMONARY HYPERTENSION
     Dosage: SEE IMAGE
     Route: 048
     Dates: start: 20050213, end: 20050201
  2. TRACLEER [Suspect]
     Indication: PULMONARY HYPERTENSION
     Dosage: SEE IMAGE
     Route: 048
     Dates: start: 20050201
  3. ACETYLSALICYLIC ACID SRT [Concomitant]
  4. NIFEDIPINE [Concomitant]

REACTIONS (5)
  - ANAEMIA [None]
  - DYSPEPSIA [None]
  - FATIGUE [None]
  - SYNCOPE [None]
  - VOMITING [None]
